APPROVED DRUG PRODUCT: TRIAMCINOLONE ACETONIDE
Active Ingredient: TRIAMCINOLONE ACETONIDE
Strength: 0.05%
Dosage Form/Route: OINTMENT;TOPICAL
Application: A212384 | Product #001 | TE Code: AT
Applicant: ENCUBE ETHICALS PRIVATE LTD
Approved: Nov 29, 2019 | RLD: No | RS: Yes | Type: RX